FAERS Safety Report 7333326-2 (Version None)
Quarter: 2011Q1

REPORT INFORMATION
  Report Type: 
  Country: None (occurrence: None)
  Receive Date: 20110304
  Receipt Date: 20110208
  Transmission Date: 20110831
  Serious: No
  Sender: FDA-Public Use
  Company Number: US-B.I. PHARMACEUTICALS,INC./RIDGEFIELD-2010-BP-10068BP

PATIENT
  Sex: Female
  Weight: 64.86 kg

DRUGS (4)
  1. ZANTAC 75 [Suspect]
     Indication: DYSPEPSIA
     Dosage: 75 MG
     Route: 048
     Dates: start: 20100903, end: 20100903
  2. ZANTAC 75 [Suspect]
     Indication: GASTRIC DISORDER
  3. ZANTAC 75 [Suspect]
     Indication: GASTROOESOPHAGEAL REFLUX DISEASE
  4. ZANTAC 75 [Suspect]

REACTIONS (2)
  - GLOSSODYNIA [None]
  - GLOSSITIS [None]
